FAERS Safety Report 9684021 (Version 1)
Quarter: 2013Q4

REPORT INFORMATION
  Report Type: Spontaneous
  Country: AT (occurrence: AT)
  Receive Date: 20131112
  Receipt Date: 20131112
  Transmission Date: 20140711
  Serious: Yes (Hospitalization, Other)
  Sender: FDA-Public Use
  Company Number: AT-UCBSA-102689

PATIENT
  Age: 63 Year
  Sex: Female

DRUGS (4)
  1. LEVETIRACETAM [Suspect]
     Indication: GRAND MAL CONVULSION
     Dosage: 1000 MG/DAY
     Route: 042
     Dates: start: 20130422, end: 2013
  2. LEVETIRACETAM [Suspect]
     Indication: GRAND MAL CONVULSION
     Route: 042
     Dates: start: 20130531
  3. CORTISON [Concomitant]
     Dosage: UNKNOWN DOSE
  4. VPA [Concomitant]
     Dosage: 2000 MG/DAY

REACTIONS (2)
  - Lung adenocarcinoma [Unknown]
  - Weight decreased [Unknown]
